FAERS Safety Report 5629664-1 (Version None)
Quarter: 2008Q1

REPORT INFORMATION
  Report Type: 
  Country: None (occurrence: None)
  Receive Date: 20080218
  Receipt Date: 20080208
  Transmission Date: 20080703
  Serious: Yes (Hospitalization)
  Sender: FDA-Public Use
  Company Number: B0505141A

PATIENT
  Age: 65 Year
  Sex: Female
  Weight: 53 kg

DRUGS (13)
  1. VALTREX [Suspect]
     Indication: HERPES ZOSTER
     Dosage: 1000MG THREE TIMES PER DAY
     Route: 048
     Dates: start: 20080119, end: 20080120
  2. FUROSEMIDE [Concomitant]
     Dosage: 40MG PER DAY
     Route: 048
  3. PREDNISOLONE [Concomitant]
     Dosage: 2MG PER DAY
     Route: 048
  4. GASTER D [Concomitant]
     Dosage: 5MG PER DAY
     Route: 048
  5. ASPIRIN [Concomitant]
     Route: 048
  6. CALTAN [Concomitant]
     Dosage: 3000MG PER DAY
     Route: 048
  7. RENAGEL [Concomitant]
     Dosage: 1500MG PER DAY
     Route: 048
  8. AMLODIN [Concomitant]
     Dosage: 5MG PER DAY
     Route: 048
  9. DIOVAN [Concomitant]
     Route: 048
  10. ROCALTROL [Concomitant]
     Dosage: .25MCG PER DAY
     Route: 048
  11. CYTOTEC [Concomitant]
     Dosage: 400MCG PER DAY
     Route: 048
     Dates: start: 20080120, end: 20080124
  12. LOXONIN [Concomitant]
     Dosage: 120MG PER DAY
     Route: 048
     Dates: start: 20080120, end: 20080124
  13. POLARAMINE [Concomitant]
     Dosage: 4MG PER DAY
     Route: 048
     Dates: start: 20080123, end: 20080127

REACTIONS (5)
  - DEPRESSED LEVEL OF CONSCIOUSNESS [None]
  - ENCEPHALOPATHY [None]
  - NAUSEA [None]
  - THERAPEUTIC AGENT TOXICITY [None]
  - VOMITING [None]
